FAERS Safety Report 4891255-8 (Version None)
Quarter: 2006Q1

REPORT INFORMATION
  Report Type: 
  Country: None (occurrence: None)
  Receive Date: 20060125
  Receipt Date: 20051228
  Transmission Date: 20060701
  Serious: Yes (Other)
  Sender: FDA-Public Use
  Company Number: JP-ROCHE-431801

PATIENT
  Age: 95 Year
  Sex: Male
  Weight: 41 kg

DRUGS (2)
  1. TAMIFLU [Suspect]
     Route: 048
     Dates: start: 20051227, end: 20051231
  2. HOKUNALIN [Concomitant]
     Dosage: DOSE FORM: TAPE.
     Route: 062
     Dates: start: 20051201

REACTIONS (1)
  - ATRIAL FIBRILLATION [None]
